FAERS Safety Report 5896332-0 (Version None)
Quarter: 2008Q3

REPORT INFORMATION
  Report Type: 
  Country: None (occurrence: None)
  Receive Date: 20080924
  Receipt Date: 20080716
  Transmission Date: 20090109
  Serious: Yes (Life-Threatening, Hospitalization)
  Sender: FDA-Public Use
  Company Number: US-ASTRAZENECA-2007UW20587

PATIENT
  Age: 262 Month
  Sex: Male
  Weight: 80.3 kg

DRUGS (6)
  1. SEROQUEL [Suspect]
     Indication: AGGRESSION
     Route: 048
     Dates: start: 20021201, end: 20060301
  2. SEROQUEL [Suspect]
     Indication: AUTISM
     Route: 048
     Dates: start: 20021201, end: 20060301
  3. DEPAKOTE [Concomitant]
  4. KLONOPIN [Concomitant]
  5. ATIVAN [Concomitant]
  6. LITHOBID [Concomitant]
     Dates: start: 20040901

REACTIONS (2)
  - DIABETIC KETOACIDOSIS [None]
  - TYPE 1 DIABETES MELLITUS [None]
